FAERS Safety Report 6751355-4 (Version None)
Quarter: 2010Q2

REPORT INFORMATION
  Report Type: 
  Country: None (occurrence: None)
  Receive Date: 20100526
  Receipt Date: 20100421
  Transmission Date: 20101027
  Serious: No
  Sender: FDA-Public Use
  Company Number: 307507

PATIENT

DRUGS (3)
  1. VICTOZA [Suspect]
     Indication: BLOOD GLUCOSE INCREASED
     Dosage: UNK
     Route: 058
  2. LEVEMIR (INSULIN DETEMIR) SOLUTION FOR INJECTION, 6MG/ ML [Concomitant]
  3. NOVOLOG MIX 70/30 [Concomitant]

REACTIONS (1)
  - BLOOD GLUCOSE INCREASED [None]
